FAERS Safety Report 9421781 (Version 1)
Quarter: 2013Q3

REPORT INFORMATION
  Report Type: Spontaneous
  Country: US (occurrence: US)
  Receive Date: 20130726
  Receipt Date: 20130726
  Transmission Date: 20140515
  Serious: No
  Sender: FDA-Public Use
  Company Number: US-009507513-1307USA014598

PATIENT
  Sex: 0

DRUGS (1)
  1. TEMODAR [Suspect]
     Route: 048

REACTIONS (2)
  - Cough [Unknown]
  - Rash [Unknown]
